FAERS Safety Report 7142447-9 (Version None)
Quarter: 2010Q4

REPORT INFORMATION
  Report Type: 
  Country: None (occurrence: None)
  Receive Date: 20101207
  Receipt Date: 20101115
  Transmission Date: 20110411
  Serious: No
  Sender: FDA-Public Use
  Company Number: US-PFIZER INC-2010148610

PATIENT
  Sex: Female
  Weight: 56.7 kg

DRUGS (4)
  1. LIPITOR [Suspect]
     Indication: BLOOD CHOLESTEROL INCREASED
     Dosage: UNK
     Route: 048
     Dates: start: 20101109, end: 20101111
  2. VITAMINS [Concomitant]
     Dosage: UNK
  3. METOPROLOL [Concomitant]
     Dosage: 50 MG, 2X/DAY
  4. BENAZEPRIL [Concomitant]
     Dosage: 5 MG, 1X/DAY

REACTIONS (1)
  - ABDOMINAL PAIN LOWER [None]
